FAERS Safety Report 22837284 (Version 7)
Quarter: 2023Q4

REPORT INFORMATION
  Report Type: Spontaneous
  Country: ES (occurrence: ES)
  Receive Date: 20230818
  Receipt Date: 20231215
  Transmission Date: 20240109
  Serious: Yes (Life-Threatening, Hospitalization, Other)
  Sender: FDA-Public Use
  Company Number: ES-Accord-372979

PATIENT
  Age: 45 Year
  Sex: Male
  Weight: 61.5 kg

DRUGS (15)
  1. FLUOROURACIL [Suspect]
     Active Substance: FLUOROURACIL
     Indication: Squamous cell carcinoma of head and neck
     Dosage: 1000 MG/M2/DAY, ON DAYS 1,2,3,4 OF EVERY 3 WEEKS CYCLE
     Route: 042
     Dates: start: 20230509, end: 20230513
  2. CISPLATIN [Suspect]
     Active Substance: CISPLATIN
     Indication: Squamous cell carcinoma of head and neck
     Dosage: 100 MILLIGRAM/SQ. METER, 1Q3W
     Route: 042
     Dates: start: 20230509, end: 20230509
  3. PEMBROLIZUMAB [Concomitant]
     Active Substance: PEMBROLIZUMAB
     Indication: Squamous cell carcinoma of head and neck
     Dosage: DOSE: 200 MILLIGRAM, 1Q3W
     Route: 042
     Dates: start: 20230509, end: 20230509
  4. DEXAMETHASONE [Concomitant]
     Active Substance: DEXAMETHASONE
     Dates: start: 20230509, end: 20230718
  5. ONDANSETRON [Concomitant]
     Active Substance: ONDANSETRON
     Dates: start: 20230509, end: 20230718
  6. APREPITANT [Concomitant]
     Active Substance: APREPITANT
     Dates: start: 20230509, end: 20230718
  7. AVIBACTAM SODIUM\CEFTAZIDIME [Concomitant]
     Active Substance: AVIBACTAM SODIUM\CEFTAZIDIME
     Dates: start: 20230626, end: 20230707
  8. AZTREONAM [Concomitant]
     Active Substance: AZTREONAM
     Dates: start: 20230630, end: 20230707
  9. FLUCONAZOLE [Concomitant]
     Active Substance: FLUCONAZOLE
     Dates: start: 20230630, end: 20230714
  10. CISPLATIN [Suspect]
     Active Substance: CISPLATIN
     Indication: Squamous cell carcinoma of head and neck
     Dosage: 80 MILLIGRAM/SQ. METER, 1Q3W
     Route: 042
     Dates: start: 20230614, end: 20230614
  11. CISPLATIN [Suspect]
     Active Substance: CISPLATIN
     Indication: Squamous cell carcinoma of head and neck
     Dosage: 64 MILLIGRAM/SQ. METER, 1Q3W
     Route: 042
     Dates: start: 20230718, end: 20230718
  12. FLUOROURACIL [Suspect]
     Active Substance: FLUOROURACIL
     Indication: Squamous cell carcinoma of head and neck
     Dosage: 800 MG/M2/DAY, ON DAYS 1,2,3,4 OF EVERY 3 WEEKS CYCLE
     Route: 042
     Dates: start: 20230614, end: 20230618
  13. FLUOROURACIL [Suspect]
     Active Substance: FLUOROURACIL
     Indication: Squamous cell carcinoma of head and neck
     Dosage: 640 MG/M2/DAY, ON DAYS 1,2,3,4 OF EVERY 3 WEEKS CYCLE
     Route: 042
     Dates: start: 20230718, end: 20230722
  14. PEMBROLIZUMAB [Concomitant]
     Active Substance: PEMBROLIZUMAB
     Indication: Squamous cell carcinoma of head and neck
     Dosage: DOSE: 200 MILLIGRAM, 1Q3W
     Route: 042
     Dates: start: 20230614, end: 20230614
  15. PEMBROLIZUMAB [Concomitant]
     Active Substance: PEMBROLIZUMAB
     Indication: Squamous cell carcinoma of head and neck
     Dosage: DOSE: 200 MILLIGRAM, 1Q3W
     Route: 042
     Dates: start: 20230718, end: 20230718

REACTIONS (1)
  - Febrile neutropenia [Recovered/Resolved]

NARRATIVE: CASE EVENT DATE: 20230727
